FAERS Safety Report 5842679-3 (Version None)
Quarter: 2008Q3

REPORT INFORMATION
  Report Type: 
  Country: None (occurrence: None)
  Receive Date: 20080808
  Receipt Date: 20080728
  Transmission Date: 20090109
  Serious: Yes (Other)
  Sender: FDA-Public Use
  Company Number: 2008SP015902

PATIENT
  Age: 54 Year
  Sex: Female
  Weight: 58.9676 kg

DRUGS (7)
  1. MIRALAX [Suspect]
     Indication: CONSTIPATION
     Dates: start: 20060601, end: 20080722
  2. MIRALAX [Suspect]
     Indication: INFREQUENT BOWEL MOVEMENTS
     Dates: start: 20060601, end: 20080722
  3. MIRALAX [Suspect]
  4. ZYRTEC (CON.) [Concomitant]
  5. OSCAL /00108001/ (CON.) [Concomitant]
  6. MAGNESIUM /00082501/(CON.) [Concomitant]
  7. RANITIDINE /00550802/ (CON.) [Concomitant]

REACTIONS (4)
  - DRUG DEPENDENCE [None]
  - PAIN [None]
  - RASH PRURITIC [None]
  - URTICARIA [None]
